FAERS Safety Report 6576999-4 (Version None)
Quarter: 2010Q1

REPORT INFORMATION
  Report Type: 
  Country: None (occurrence: None)
  Receive Date: 20100210
  Receipt Date: 20100202
  Transmission Date: 20100710
  Serious: Yes (Hospitalization)
  Sender: FDA-Public Use
  Company Number: GXKR2010SE01495

PATIENT
  Sex: Male

DRUGS (1)
  1. RIFAMPIN AND ISONIAZID [Suspect]
     Indication: LYMPH NODE TUBERCULOSIS
     Dosage: 375 MG/DAY
     Route: 048
     Dates: start: 20090928, end: 20091113

REACTIONS (2)
  - OPTIC NEURITIS [None]
  - VISUAL IMPAIRMENT [None]
